FAERS Safety Report 10019845 (Version 2)
Quarter: 2014Q1

REPORT INFORMATION
  Report Type: Spontaneous
  Country: US (occurrence: US)
  Receive Date: 20140318
  Receipt Date: 20140318
  Transmission Date: 20141002
  Serious: No
  Sender: FDA-Public Use
  Company Number: US-GALDERMA-US14000037

PATIENT
  Age: 60 Year
  Sex: Female

DRUGS (9)
  1. MIRVASO (BRIMONIDINE) TOPICAL GEL, 0.33% [Suspect]
     Indication: ROSACEA
     Dosage: 0.33%
     Route: 061
     Dates: start: 20131217, end: 20131225
  2. MIRVASO (BRIMONIDINE) TOPICAL GEL, 0.33% [Suspect]
     Indication: ROSACEA
     Dosage: 0.33%
     Route: 061
     Dates: start: 20131220, end: 20140102
  3. HYDROCHLOROTHIAZIDE [Concomitant]
     Indication: HYPERTENSION
     Dosage: 25MG
     Route: 048
  4. FLUTICASONE [Concomitant]
     Indication: RHINITIS ALLERGIC
     Dosage: 50 MCG
  5. ZYRTEC (CETIRIZINE) [Concomitant]
     Indication: RHINITIS ALLERGIC
     Dosage: 10 MG
     Route: 048
  6. MULTIVITAMINS [Concomitant]
     Indication: SUPPLEMENTATION THERAPY
     Route: 048
  7. OIL OF OLAY REGENERIST CLEANSER [Concomitant]
     Indication: THERAPEUTIC SKIN CARE TOPICAL
     Route: 061
     Dates: start: 2007
  8. MONTELUKAST [Concomitant]
     Dosage: 10 MG
     Route: 048
  9. OMEPRAZOLE [Concomitant]
     Dosage: 20 MG
     Route: 048

REACTIONS (2)
  - Condition aggravated [Recovered/Resolved]
  - Erythema [Recovered/Resolved]
